FAERS Safety Report 24085019 (Version 1)
Quarter: 2024Q3

REPORT INFORMATION
  Report Type: Spontaneous
  Country: US (occurrence: US)
  Receive Date: 20240712
  Receipt Date: 20240712
  Transmission Date: 20241017
  Serious: No
  Sender: FRESENIUS KABI
  Company Number: US-FreseniusKabi-FK202410854

PATIENT
  Sex: Male

DRUGS (1)
  1. ADALIMUMAB-AACF [Suspect]
     Active Substance: ADALIMUMAB\ADALIMUMAB-AACF\ISOPROPYL ALCOHOL
     Indication: Product used for unknown indication
     Dosage: INJECTION?TOOK THE 2ND SHOT ON 27-JUN-2024 IN CURRENT CYCLE OF SHOTS (4 WEEK CYCLE)

REACTIONS (1)
  - Injection site pain [Unknown]

NARRATIVE: CASE EVENT DATE: 20240627
